FAERS Safety Report 8876584 (Version 3)
Quarter: 2012Q4

REPORT INFORMATION
  Report Type: 
  Country: US (occurrence: US)
  Receive Date: 20121023
  Receipt Date: 20121217
  Transmission Date: 20130627
  Serious: Yes (Other)
  Sender: FDA-Public Use
  Company Number: US-ASTELLAS-2012US006311

PATIENT
  Age: 61 None
  Sex: Female
  Weight: 47 kg

DRUGS (7)
  1. PROGRAF [Suspect]
     Indication: LUNG TRANSPLANT
     Dosage: 1 mg in the AM and 0.5 mg PM, always with food.
     Route: 065
  2. VORICONAZOLE [Suspect]
     Indication: FUNGAL INFECTION
     Dosage: 200 mg, bid
     Route: 048
     Dates: start: 20120620, end: 20120709
  3. VORICONAZOLE [Suspect]
     Dosage: 300 mg, bid
     Route: 048
     Dates: start: 20120710, end: 20120821
  4. VORICONAZOLE [Suspect]
     Dosage: 200 mg, bid
     Route: 048
     Dates: start: 20120822, end: 20120920
  5. ANTINEOPLASTIC AGENTS [Suspect]
     Indication: PRODUCT USED FOR UNKNOWN INDICATION
     Dosage: UNK
     Route: 065
  6. PREDNISONE [Concomitant]
     Indication: PROPHYLAXIS AGAINST TRANSPLANT REJECTION
     Dosage: 5 mg, UID/QD
     Route: 065
     Dates: start: 20080924
  7. MYFORTIC [Concomitant]
     Indication: PROPHYLAXIS AGAINST TRANSPLANT REJECTION
     Dosage: 180 mg, bid
     Route: 065

REACTIONS (35)
  - Off label use [Unknown]
  - Thyroidectomy [Unknown]
  - Vocal cord paralysis [Unknown]
  - Lumbar spinal stenosis [Recovering/Resolving]
  - Lumbar radiculopathy [Unknown]
  - Intervertebral disc displacement [Unknown]
  - Hypothyroidism [Unknown]
  - Cor pulmonale chronic [Unknown]
  - Renal failure chronic [Unknown]
  - Peroneal nerve palsy [Not Recovered/Not Resolved]
  - Aspergillosis [Recovered/Resolved]
  - Liver function test abnormal [Recovered/Resolved]
  - Bone pain [Recovering/Resolving]
  - Palpitations [Recovered/Resolved]
  - Osteoarthritis [Unknown]
  - Limb injury [Unknown]
  - Oedema peripheral [Recovering/Resolving]
  - Immunosuppressant drug level increased [Unknown]
  - Immunosuppressant drug level decreased [Unknown]
  - Lethargy [Unknown]
  - Diarrhoea [Unknown]
  - Muscle spasms [Unknown]
  - Headache [Recovered/Resolved]
  - Tremor [Recovered/Resolved]
  - Fatigue [Recovered/Resolved]
  - Back pain [Recovered/Resolved]
  - Feeling abnormal [Recovered/Resolved]
  - Constipation [Recovered/Resolved]
  - Weight decreased [Unknown]
  - Peripheral sensory neuropathy [Unknown]
  - Peripheral sensory neuropathy [Unknown]
  - Atypical mycobacterium test positive [Unknown]
  - Hypertension [Unknown]
  - Bronchiectasis [Unknown]
  - Osteoporosis [Unknown]
